FAERS Safety Report 10355802 (Version 2)
Quarter: 2014Q3

REPORT INFORMATION
  Report Type: Report from Study
  Country: JP (occurrence: JP)
  Receive Date: 20140731
  Receipt Date: 20140731
  Transmission Date: 20150326
  Serious: Yes (Hospitalization, Other)
  Sender: FDA-Public Use
  Company Number: JP-ALLERGAN-1015319US

PATIENT
  Age: 3 Year
  Sex: Male

DRUGS (3)
  1. BLINDED BOTULINUM TOXIN TYPE A - GENERAL (9060X) [Suspect]
     Active Substance: BOTULINUM TOXIN TYPE A
     Indication: TORTICOLLIS
     Dosage: 40 UNITS, SINGLE
     Route: 030
     Dates: start: 20060228, end: 20060228
  2. UNKNOWNDRUG [Concomitant]
     Active Substance: UNSPECIFIED INGREDIENT
     Indication: TORTICOLLIS
     Route: 048
  3. LIORESAL [Concomitant]
     Active Substance: BACLOFEN
     Indication: TORTICOLLIS
     Dosage: 15 MG, QD
     Route: 048
     Dates: start: 20051004, end: 20090127

REACTIONS (8)
  - Atlantoaxial instability [Unknown]
  - Cervical myelopathy [Unknown]
  - Joint dislocation [Unknown]
  - Camptocormia [Unknown]
  - Clonus [Unknown]
  - Spinal disorder [Unknown]
  - Hypokinesia [Unknown]
  - Dysphagia [Recovered/Resolved]

NARRATIVE: CASE EVENT DATE: 20060425
